FAERS Safety Report 12234117 (Version 6)
Quarter: 2019Q1

REPORT INFORMATION
  Report Type: Report from Study
  Country: GB (occurrence: GB)
  Receive Date: 20160404
  Receipt Date: 20190108
  Transmission Date: 20190417
  Serious: Yes (Other)
  Sender: FDA-Public Use
  Company Number: PHHY2014GB063494

PATIENT
  Age: 39 Year
  Sex: Female

DRUGS (12)
  1. GILENYA [Suspect]
     Active Substance: FINGOLIMOD HYDROCHLORIDE
     Indication: MULTIPLE SCLEROSIS
     Dosage: 0.5 MG, QD
     Route: 048
     Dates: start: 20130903
  2. VERSATIS [Concomitant]
     Active Substance: LIDOCAINE
     Indication: COMPLEX REGIONAL PAIN SYNDROME
     Route: 065
     Dates: start: 201302
  3. DULOXETINE. [Concomitant]
     Active Substance: DULOXETINE
     Indication: BIPOLAR DISORDER
     Route: 065
     Dates: start: 201109
  4. PREGABALIN. [Concomitant]
     Active Substance: PREGABALIN
     Indication: PAIN
     Dosage: 400 MG
     Route: 065
     Dates: start: 201302
  5. TAPENTADOL [Concomitant]
     Active Substance: TAPENTADOL
     Indication: COMPLEX REGIONAL PAIN SYNDROME
     Dosage: 250 MG, BID
     Route: 065
     Dates: start: 201401
  6. LANSOPRAZOLE. [Concomitant]
     Active Substance: LANSOPRAZOLE
     Indication: HIATUS HERNIA
     Route: 065
     Dates: start: 2003
  7. MODAFINIL. [Concomitant]
     Active Substance: MODAFINIL
     Indication: FATIGUE
     Route: 065
     Dates: start: 2005
  8. LANSOPRAZOLE. [Concomitant]
     Active Substance: LANSOPRAZOLE
     Route: 065
  9. VERSATIS [Concomitant]
     Active Substance: LIDOCAINE
     Indication: ARTHRALGIA
  10. VERSATIS [Concomitant]
     Active Substance: LIDOCAINE
     Indication: COMPLEX REGIONAL PAIN SYNDROME
  11. QUETIAPINE. [Concomitant]
     Active Substance: QUETIAPINE
     Indication: BIPOLAR DISORDER
     Route: 065
     Dates: start: 201309
  12. VERSATIS [Concomitant]
     Active Substance: LIDOCAINE
     Indication: ARTHRALGIA

REACTIONS (15)
  - Multiple sclerosis relapse [Unknown]
  - Blood alkaline phosphatase increased [Unknown]
  - Groin pain [Unknown]
  - Pleurisy [Recovered/Resolved]
  - Muscle spasms [Unknown]
  - Lymphocyte count decreased [Unknown]
  - Urinary tract infection [Recovered/Resolved]
  - Epistaxis [Recovered/Resolved]
  - Nasopharyngitis [Recovered/Resolved]
  - Vitamin B12 deficiency [Unknown]
  - Lower respiratory tract infection [Recovered/Resolved]
  - Arthritis [Recovered/Resolved]
  - Nasopharyngitis [Recovered/Resolved]
  - Pleurisy [Recovered/Resolved]
  - Palpitations [Recovered/Resolved]

NARRATIVE: CASE EVENT DATE: 20130912
